FAERS Safety Report 15402797 (Version 1)
Quarter: 2018Q3

REPORT INFORMATION
  Report Type: Spontaneous
  Country: US (occurrence: US)
  Receive Date: 20180919
  Receipt Date: 20180919
  Transmission Date: 20181010
  Serious: No
  Sender: FDA-Public Use
  Company Number: US-AMNEAL PHARMACEUTICALS-2018AMN00004

PATIENT
  Sex: Female

DRUGS (7)
  1. HYDROCODONE AND ACETAMINOPHEN [Suspect]
     Active Substance: ACETAMINOPHEN\HYDROCODONE
     Indication: BACK PAIN
     Dosage: UNK
     Route: 048
     Dates: start: 20171205
  2. ATORVASTATIN [Concomitant]
     Active Substance: ATORVASTATIN
     Indication: HYPERCHOLESTEROLAEMIA
     Dosage: UNK
     Route: 065
  3. OMEPRAZOLE. [Concomitant]
     Active Substance: OMEPRAZOLE
     Indication: ABDOMINAL DISCOMFORT
     Dosage: UNK
     Route: 065
  4. DICLOFENAC SODIUM. [Concomitant]
     Active Substance: DICLOFENAC SODIUM
     Dosage: UNK
     Route: 065
  5. IBUPROFEN. [Concomitant]
     Active Substance: IBUPROFEN
     Dosage: 600 MG, 4X/DAY
     Route: 065
  6. PAROXETINE. [Concomitant]
     Active Substance: PAROXETINE
     Indication: DEPRESSION
     Dosage: UNK
     Route: 065
  7. LIDOCAINE. [Concomitant]
     Active Substance: LIDOCAINE
     Dosage: UNK
     Route: 065

REACTIONS (3)
  - Abdominal discomfort [Unknown]
  - Drug ineffective [Unknown]
  - Pain [Unknown]

NARRATIVE: CASE EVENT DATE: 20171205
